FAERS Safety Report 7398333-2 (Version None)
Quarter: 2011Q2

REPORT INFORMATION
  Report Type: 
  Country: None (occurrence: None)
  Receive Date: 20110406
  Receipt Date: 20110325
  Transmission Date: 20111010
  Serious: Yes (Other)
  Sender: FDA-Public Use
  Company Number: US-ELI_LILLY_AND_COMPANY-US201102003038

PATIENT
  Sex: Female

DRUGS (22)
  1. BONIVA [Concomitant]
  2. MEDROXYPROGESTERONE [Concomitant]
     Dosage: 2.5 MG, QD
  3. VITAMIN D [Concomitant]
  4. ESTRADIOL [Concomitant]
     Dosage: 1 MG, QD
  5. CALTRATE [Concomitant]
  6. BACLOFEN [Concomitant]
     Indication: MUSCLE SPASMS
     Dosage: 10 MG, OTHER
  7. ADVAIR DISKUS 100/50 [Concomitant]
     Dosage: UNK, BID
  8. FORTEO [Suspect]
     Dosage: 20 UG, QD
     Route: 065
     Dates: start: 20110301
  9. CELEXA [Concomitant]
     Dosage: 30 MG, QD
  10. FORTEO [Suspect]
     Indication: OSTEOPOROSIS
     Dosage: 20 UG, QD
     Route: 065
     Dates: start: 20110203, end: 20110214
  11. OXYCONTIN [Concomitant]
     Dosage: 30 MG, BID
  12. SINGULAIR [Concomitant]
     Dosage: 10 MG, QD
  13. OXYCONTIN [Concomitant]
     Dosage: 80 MG, BID
  14. RANITIDINE [Concomitant]
     Dosage: 300 MG, QD
  15. ASPIRIN [Concomitant]
     Dosage: 81 MG, UNK
  16. MIRALAX [Concomitant]
  17. CHERATUSSIN [Concomitant]
     Dosage: UNK, PRN
  18. XANAX [Concomitant]
  19. DIAZEPAM [Concomitant]
     Dosage: 10 MG, PRN
  20. SPIRIVA [Concomitant]
  21. ALBUTEROL [Concomitant]
  22. PANTOPRAZOLE [Concomitant]
     Dosage: 40 MG, QD

REACTIONS (10)
  - PAIN [None]
  - ILL-DEFINED DISORDER [None]
  - MYALGIA [None]
  - ARTHRALGIA [None]
  - NAUSEA [None]
  - DYSSTASIA [None]
  - FALL [None]
  - VOMITING [None]
  - WRIST FRACTURE [None]
  - DIZZINESS [None]
